FAERS Safety Report 8246225-9 (Version None)
Quarter: 2012Q1

REPORT INFORMATION
  Report Type: 
  Country: None (occurrence: None)
  Receive Date: 20120330
  Receipt Date: 20100315
  Transmission Date: 20120608
  Serious: No
  Sender: FDA-Public Use
  Company Number: US-MYLANLABS-2010S1003182

PATIENT
  Age: 10 Year
  Sex: Female
  Weight: 68 kg

DRUGS (3)
  1. ALBUTEROL SULATE [Suspect]
     Indication: ASTHMA
     Route: 055
     Dates: start: 20100124, end: 20100201
  2. ALBUTEROL SULATE [Suspect]
     Indication: WHEEZING
     Route: 055
     Dates: start: 20100124, end: 20100201
  3. VENTOLIN [Suspect]
     Indication: ASTHMA
     Route: 055
     Dates: start: 20100101, end: 20100101

REACTIONS (2)
  - HYPERSENSITIVITY [None]
  - COUGH [None]
